FAERS Safety Report 9131953 (Version 1)
Quarter: 2013Q1

REPORT INFORMATION
  Report Type: Spontaneous
  Country: PL (occurrence: PL)
  Receive Date: 20130301
  Receipt Date: 20130301
  Transmission Date: 20140127
  Serious: Yes (Hospitalization, Other)
  Sender: FDA-Public Use
  Company Number: PL-BAXTER-2013BAX007166

PATIENT
  Age: 2 Year
  Sex: Male

DRUGS (3)
  1. ADVATE 250 IU POWDER AND SOLVENT FOR SOLUTION FOR INJECTION [Suspect]
     Indication: FACTOR VIII DEFICIENCY
     Route: 065
  2. ADVATE 250 IU POWDER AND SOLVENT FOR SOLUTION FOR INJECTION [Suspect]
     Route: 065
  3. ADVATE 250 IU POWDER AND SOLVENT FOR SOLUTION FOR INJECTION [Suspect]
     Route: 065

REACTIONS (3)
  - Haemorrhage [Recovered/Resolved]
  - Factor VIII inhibition [Unknown]
  - Drug ineffective [Not Recovered/Not Resolved]
